FAERS Safety Report 12186227 (Version 3)
Quarter: 2016Q2

REPORT INFORMATION
  Report Type: Spontaneous
  Country: US (occurrence: US)
  Receive Date: 20160317
  Receipt Date: 20160418
  Transmission Date: 20160815
  Serious: Yes (Other)
  Sender: FDA-Public Use
  Company Number: US-PFIZER INC-2016146194

PATIENT
  Age: 80 Year
  Sex: Female

DRUGS (4)
  1. LATANOPROST. [Suspect]
     Active Substance: LATANOPROST
     Dosage: 1 GTT, DAILY IN EACH EYE
     Route: 047
     Dates: start: 2008
  2. LATANOPROST. [Suspect]
     Active Substance: LATANOPROST
     Indication: GLAUCOMA
     Dosage: UNK
     Dates: start: 200711
  3. XALATAN [Suspect]
     Active Substance: LATANOPROST
     Dosage: UNK(1 DROP IN EACH EYE AT NIGHT TIME)
     Dates: start: 200711
  4. XALATAN [Suspect]
     Active Substance: LATANOPROST
     Dosage: UNK
     Dates: start: 200711

REACTIONS (4)
  - Upper limb fracture [Not Recovered/Not Resolved]
  - Pain [Not Recovered/Not Resolved]
  - Tremor [Not Recovered/Not Resolved]
  - Accidental exposure to product [Not Recovered/Not Resolved]
